FAERS Safety Report 5671333-6 (Version None)
Quarter: 2008Q1

REPORT INFORMATION
  Report Type: 
  Country: None (occurrence: None)
  Receive Date: 20080312
  Receipt Date: 20080303
  Transmission Date: 20080703
  Serious: Yes (Other)
  Sender: FDA-Public Use
  Company Number: CHNY2008GB01114

PATIENT
  Sex: Male

DRUGS (4)
  1. ACETYLSALICYLIC ACID SRT [Suspect]
  2. IBUPROFEN [Suspect]
  3. PAROXETINE HYDROCHLORIDE [Suspect]
  4. ALCOHOL(ETHANOL) [Suspect]

REACTIONS (3)
  - COMPLETED SUICIDE [None]
  - DRUG WITHDRAWAL SYNDROME [None]
  - MULTIPLE DRUG OVERDOSE [None]
